FAERS Safety Report 8154906-0 (Version None)
Quarter: 2012Q1

REPORT INFORMATION
  Report Type: 
  Country: None (occurrence: None)
  Receive Date: 20120221
  Receipt Date: 20120215
  Transmission Date: 20120608
  Serious: Yes (Hospitalization)
  Sender: FDA-Public Use
  Company Number: PHHO2010US19414

PATIENT
  Sex: Female
  Weight: 90 kg

DRUGS (1)
  1. AFINITOR [Suspect]
     Indication: LYMPHOMA
     Dosage: 16 MG, QD
     Route: 048
     Dates: start: 20101116, end: 20110308

REACTIONS (5)
  - GASTROINTESTINAL DISORDER [None]
  - COLITIS [None]
  - ABDOMINAL PAIN [None]
  - VOMITING [None]
  - NAUSEA [None]
